FAERS Safety Report 6158032-1 (Version None)
Quarter: 2009Q2

REPORT INFORMATION
  Report Type: 
  Country: None (occurrence: None)
  Receive Date: 20090417
  Receipt Date: 20090417
  Transmission Date: 20091009
  Serious: Yes (Hospitalization, Other)
  Sender: FDA-Public Use
  Company Number: US-PFIZER INC-2009177720

PATIENT
  Sex: Female
  Weight: 75.283 kg

DRUGS (4)
  1. CLINDAMYCIN PHOSPHATE [Suspect]
     Indication: TOOTH INFECTION
     Dosage: 150 MG, 4X/DAY
     Dates: start: 20090201, end: 20090228
  2. ADVIL [Suspect]
     Indication: PAIN
     Dates: start: 20090201, end: 20090201
  3. METFORMIN [Concomitant]
     Dosage: UNK
  4. TYLENOL [Concomitant]
     Dates: start: 20090201, end: 20090201

REACTIONS (5)
  - HYPERTENSION [None]
  - OVERDOSE [None]
  - PAIN [None]
  - PANIC ATTACK [None]
  - RASH MACULAR [None]
